FAERS Safety Report 9517267 (Version 1)
Quarter: 2013Q1

REPORT INFORMATION
  Report Type: Spontaneous
  Country: US (occurrence: None)
  Receive Date: 20130305
  Receipt Date: 20130305
  Transmission Date: 20140127
  Serious: Yes (Other)
  Sender: FDA-Public Use
  Company Number: 163-21880-12030961

PATIENT
  Age: 43 Year
  Sex: Male
  Weight: 87.1 kg

DRUGS (1)
  1. REVLIMID [Suspect]
     Indication: PLASMA CELL MYELOMA
     Dosage: 21 IN 21 D
     Route: 048
     Dates: start: 20120207

REACTIONS (5)
  - Muscle spasms [None]
  - Local swelling [None]
  - Dry skin [None]
  - Rash [None]
  - Drug dose omission [None]
